FAERS Safety Report 17856242 (Version 1)
Quarter: 2020Q2

REPORT INFORMATION
  Report Type: Spontaneous
  Country: FR (occurrence: FR)
  Receive Date: 20200603
  Receipt Date: 20200603
  Transmission Date: 20200714
  Serious: Yes (Life-Threatening)
  Sender: FDA-Public Use
  Company Number: FR-MYLANLABS-2020M1053749

PATIENT
  Age: 69 Year
  Sex: Male
  Weight: 86 kg

DRUGS (4)
  1. MYLAN REMIFENTANIL [Suspect]
     Active Substance: REMIFENTANIL
     Indication: INDUCTION OF ANAESTHESIA
     Dosage: UNK
     Route: 042
     Dates: start: 20200504, end: 20200504
  2. VISIPAQUE [Suspect]
     Active Substance: IODIXANOL
     Indication: SCAN WITH CONTRAST
     Dosage: 40 MILLILITER, TOTAL (320 MG D^I/ML)
     Route: 042
     Dates: start: 20200504, end: 20200504
  3. HEPARINE SODIQUE [Suspect]
     Active Substance: HEPARIN SODIUM
     Indication: ANTICOAGULANT THERAPY
     Dosage: 9800 INTERNATIONAL UNIT, TOTAL
     Route: 042
     Dates: start: 20200504, end: 20200504
  4. PROPOFOL LIPURO [Suspect]
     Active Substance: PROPOFOL
     Indication: INDUCTION OF ANAESTHESIA
     Dosage: UNK, 2 % (20 MG/ML)
     Route: 042
     Dates: start: 20200504, end: 20200504

REACTIONS (2)
  - Bronchospasm [Recovered/Resolved]
  - Anaphylactic shock [Recovered/Resolved]

NARRATIVE: CASE EVENT DATE: 20200504
